FAERS Safety Report 4473865-5 (Version None)
Quarter: 2004Q4

REPORT INFORMATION
  Report Type: 
  Country: None (occurrence: None)
  Receive Date: 20041014
  Receipt Date: 20041001
  Transmission Date: 20050328
  Serious: Yes (Death, Other)
  Sender: FDA-Public Use
  Company Number: GB-JNJFOC-20040707496

PATIENT
  Age: 54 Year
  Sex: Male

DRUGS (7)
  1. RETEPLASE [Suspect]
     Indication: MYOCARDIAL INFARCTION
     Route: 042
  2. ASPIRIN [Concomitant]
     Indication: ACUTE CORONARY SYNDROME
  3. ATENOLOL [Concomitant]
     Indication: ACUTE CORONARY SYNDROME
  4. INDOMETHACIN [Concomitant]
     Indication: PAIN
  5. ISOSORBIDE [Concomitant]
  6. CLEXANE [Concomitant]
     Indication: ACUTE CORONARY SYNDROME
  7. DIAMORPHINE [Concomitant]

REACTIONS (11)
  - ANAPHYLACTIC REACTION [None]
  - ARTERIAL RUPTURE [None]
  - CARDIAC TAMPONADE [None]
  - CARDIO-RESPIRATORY ARREST [None]
  - CONVULSION [None]
  - HAEMORRHAGE CORONARY ARTERY [None]
  - HYPERAESTHESIA [None]
  - LOSS OF CONSCIOUSNESS [None]
  - PERICARDIAL EFFUSION [None]
  - PERICARDIAL HAEMORRHAGE [None]
  - SWELLING FACE [None]
